FAERS Safety Report 7542752-8 (Version None)
Quarter: 2011Q2

REPORT INFORMATION
  Report Type: 
  Country: None (occurrence: None)
  Receive Date: 20110613
  Receipt Date: 20110602
  Transmission Date: 20111010
  Serious: Yes (Congenital Anomaly)
  Sender: FDA-Public Use
  Company Number: A0930996A

PATIENT
  Sex: Female

DRUGS (2)
  1. PAXIL [Suspect]
     Indication: DEPRESSION
     Route: 064
     Dates: start: 19990101
  2. ZOLOFT [Suspect]
     Indication: DEPRESSION
     Route: 064
     Dates: start: 19990101

REACTIONS (2)
  - FALLOT'S TETRALOGY [None]
  - DRUG EXPOSURE DURING PREGNANCY [None]
